FAERS Safety Report 5598213-9 (Version None)
Quarter: 2008Q1

REPORT INFORMATION
  Report Type: 
  Country: None (occurrence: None)
  Receive Date: 20080122
  Receipt Date: 20080110
  Transmission Date: 20080703
  Serious: Yes (Other)
  Sender: FDA-Public Use
  Company Number: US-BAYER-200810897NA

PATIENT
  Age: 30 Year
  Sex: Female
  Weight: 64 kg

DRUGS (1)
  1. YASMIN [Suspect]
     Indication: CONTRACEPTION
     Route: 048
     Dates: start: 20071201, end: 20080108

REACTIONS (3)
  - MUSCLE SPASMS [None]
  - PHARYNGEAL OEDEMA [None]
  - VOMITING [None]
